FAERS Safety Report 19896114 (Version 2)
Quarter: 2021Q4

REPORT INFORMATION
  Report Type: Spontaneous
  Country: US (occurrence: US)
  Receive Date: 20210929
  Receipt Date: 20211028
  Transmission Date: 20220303
  Serious: Yes (Other)
  Sender: FDA-Public Use
  Company Number: US-COOPERSURGICAL, INC.-US-2021CPS002859

PATIENT
  Age: 29 Year
  Sex: Female
  Weight: 69.84 kg

DRUGS (8)
  1. PARAGARD T 380A [Suspect]
     Active Substance: COPPER
     Dosage: 08-APR-2021
     Route: 015
  2. PARAGARD T 380A [Suspect]
     Active Substance: COPPER
     Dosage: 27-SEP-2021
     Route: 015
  3. JUNEL FE 1/20 [Concomitant]
     Active Substance: ETHINYL ESTRADIOL\NORETHINDRONE ACETATE
     Route: 065
  4. LEVOTHYROXINE [Concomitant]
     Active Substance: LEVOTHYROXINE
     Dosage: UNK
     Route: 065
  5. PIOGLITAZONE [Concomitant]
     Active Substance: PIOGLITAZONE
     Dosage: 30 MG, UNK
     Route: 065
  6. FIASP [Concomitant]
     Active Substance: INSULIN ASPART
     Dosage: 100 UNK, UNK
     Route: 058
  7. IMIQUIMOD [Concomitant]
     Active Substance: IMIQUIMOD
     Route: 061
  8. OXYBUTYNIN CHLORIDE [Concomitant]
     Active Substance: OXYBUTYNIN CHLORIDE
     Dosage: 5 MG, UNK
     Route: 065

REACTIONS (8)
  - Ovarian cyst [Unknown]
  - Abdominal pain upper [Unknown]
  - Device dislocation [Recovered/Resolved]
  - Dysuria [Unknown]
  - Pelvic pain [Unknown]
  - Abdominal pain [Unknown]
  - Nausea [Unknown]
  - Menstruation irregular [Not Recovered/Not Resolved]

NARRATIVE: CASE EVENT DATE: 20210101
